FAERS Safety Report 18263464 (Version 11)
Quarter: 2021Q1

REPORT INFORMATION
  Report Type: Spontaneous
  Country: US (occurrence: US)
  Receive Date: 20200914
  Receipt Date: 20210309
  Transmission Date: 20210419
  Serious: Yes (Other)
  Sender: FDA-Public Use
  Company Number: US-GLAXOSMITHKLINE-US2020AMR179792

PATIENT
  Sex: Female

DRUGS (9)
  1. ZEJULA [Suspect]
     Active Substance: NIRAPARIB
     Dosage: 200 MG, QD
     Route: 048
     Dates: start: 2020
  2. ZEJULA [Suspect]
     Active Substance: NIRAPARIB
     Dosage: 200 MG, QD
  3. ATORVASTATIN [Concomitant]
     Active Substance: ATORVASTATIN
     Indication: PRODUCT USED FOR UNKNOWN INDICATION
     Dosage: UNK
  4. ZEJULA [Suspect]
     Active Substance: NIRAPARIB
     Indication: OVARIAN CANCER
     Dosage: 200 MG, QD
     Route: 048
     Dates: start: 20200901
  5. ZEJULA [Suspect]
     Active Substance: NIRAPARIB
     Dosage: 200 MG, QD
     Route: 048
     Dates: start: 2020
  6. MULTIVIT PREP WITH OR WITHOUT MINERALS [Concomitant]
     Indication: PRODUCT USED FOR UNKNOWN INDICATION
     Dosage: UNK
  7. ZEJULA [Suspect]
     Active Substance: NIRAPARIB
     Dosage: 200 MG, QD
  8. VITAMIN D3 [Concomitant]
     Active Substance: CHOLECALCIFEROL
     Indication: PRODUCT USED FOR UNKNOWN INDICATION
     Dosage: UNK
  9. B12 COMPLEX [Concomitant]
     Indication: PRODUCT USED FOR UNKNOWN INDICATION
     Dosage: UNK

REACTIONS (34)
  - Renal disorder [Unknown]
  - Cough [Unknown]
  - Paraesthesia [Not Recovered/Not Resolved]
  - Insomnia [Not Recovered/Not Resolved]
  - Pneumonitis [Unknown]
  - Throat irritation [Unknown]
  - Computerised tomogram abnormal [Unknown]
  - Product dose omission issue [Unknown]
  - Vaginal haemorrhage [Recovered/Resolved]
  - Peripheral swelling [Recovering/Resolving]
  - Urine odour abnormal [Unknown]
  - Pigmentation disorder [Unknown]
  - Platelet count decreased [Recovered/Resolved]
  - Blood glucose increased [Recovering/Resolving]
  - Glycosylated haemoglobin increased [Recovering/Resolving]
  - Joint swelling [Not Recovered/Not Resolved]
  - Dry mouth [Unknown]
  - Neuropathy peripheral [Not Recovered/Not Resolved]
  - Hepatic enzyme increased [Recovering/Resolving]
  - Oedema [Not Recovered/Not Resolved]
  - Pelvic fluid collection [Unknown]
  - Adverse drug reaction [Unknown]
  - Heart rate increased [Not Recovered/Not Resolved]
  - Constipation [Recovering/Resolving]
  - Product supply issue [Unknown]
  - Blood pressure increased [Not Recovered/Not Resolved]
  - Weight decreased [Not Recovered/Not Resolved]
  - Fungal skin infection [Unknown]
  - Pulmonary function test abnormal [Unknown]
  - Anxiety [Unknown]
  - Rash [Not Recovered/Not Resolved]
  - Bronchitis [Unknown]
  - Carpal tunnel syndrome [Unknown]
  - Hypoaesthesia [Recovering/Resolving]
